FAERS Safety Report 9765164 (Version 1)
Quarter: 2013Q4

REPORT INFORMATION
  Report Type: Spontaneous
  Country: US (occurrence: US)
  Receive Date: 20131217
  Receipt Date: 20131217
  Transmission Date: 20140711
  Serious: No
  Sender: FDA-Public Use
  Company Number: US-GLAXOSMITHKLINE-A1010779A

PATIENT
  Age: 43 Year
  Sex: Female

DRUGS (2)
  1. SORIATANE [Suspect]
     Indication: PSORIASIS
     Dosage: 25MG PER DAY
     Route: 048
     Dates: start: 20130127, end: 20130202
  2. NO CONCURRENT MEDICATION [Concomitant]

REACTIONS (7)
  - Headache [Not Recovered/Not Resolved]
  - Irritability [Unknown]
  - Skin exfoliation [Unknown]
  - Hyperaesthesia [Unknown]
  - Chapped lips [Unknown]
  - Oral disorder [Unknown]
  - Nasal dryness [Unknown]
